FAERS Safety Report 25871804 (Version 1)
Quarter: 2025Q4

REPORT INFORMATION
  Report Type: Spontaneous
  Country: US (occurrence: US)
  Receive Date: 20251001
  Receipt Date: 20251001
  Transmission Date: 20260117
  Serious: Yes (Hospitalization)
  Sender: MERCK SHARP & DOHME LLC
  Company Number: US-009507513-2334213

PATIENT
  Age: 67 Year
  Sex: Female
  Weight: 55.338 kg

DRUGS (25)
  1. SOTATERCEPT-CSRK [Suspect]
     Active Substance: SOTATERCEPT-CSRK
     Indication: Product used for unknown indication
     Route: 065
     Dates: end: 2025
  2. SOTATERCEPT-CSRK [Suspect]
     Active Substance: SOTATERCEPT-CSRK
  3. SOTATERCEPT-CSRK [Suspect]
     Active Substance: SOTATERCEPT-CSRK
  4. SOTATERCEPT-CSRK [Suspect]
     Active Substance: SOTATERCEPT-CSRK
  5. REMODULIN [Suspect]
     Active Substance: TREPROSTINIL
     Indication: Pulmonary arterial hypertension
     Dosage: STRENGTH 2.5MG/ML, 0.04987 MG/KG, FREQUENCY CONTINUOUS
     Route: 042
     Dates: start: 20240223
  6. D3+K2 [Concomitant]
  7. POTASSIUM CHLORIDE [Concomitant]
     Active Substance: POTASSIUM CHLORIDE
  8. WIXELA INHUB [Concomitant]
     Active Substance: FLUTICASONE PROPIONATE\SALMETEROL XINAFOATE
  9. FERROUS SULFATE [Concomitant]
     Active Substance: FERROUS SULFATE
  10. AZELASTINE HYDROCHLORIDE\FLUTICASONE PROPIONATE [Concomitant]
     Active Substance: AZELASTINE HYDROCHLORIDE\FLUTICASONE PROPIONATE
  11. VITAMIN B COMPLEX [Concomitant]
     Active Substance: CYANOCOBALAMIN\DEXPANTHENOL\NIACINAMIDE\PYRIDOXINE HYDROCHLORIDE\RIBOFLAVIN 5^-PHOSPHATE SODIUM\THIA
  12. LEVOTHYROXINE SODIUM [Concomitant]
     Active Substance: LEVOTHYROXINE SODIUM
  13. MUCINEX [Concomitant]
     Active Substance: GUAIFENESIN
  14. MAGNESIUM GLYCINATE [Concomitant]
     Active Substance: MAGNESIUM GLYCINATE
  15. CLARITIN [Concomitant]
     Active Substance: LORATADINE
  16. SPIRONOLACTONE [Concomitant]
     Active Substance: SPIRONOLACTONE
  17. OXYGEN [Concomitant]
     Active Substance: OXYGEN
  18. FUROSEMIDE [Concomitant]
     Active Substance: FUROSEMIDE
  19. SELENIUM [Concomitant]
     Active Substance: SELENIUM
  20. FERRIC POLYSACCHARIDE COMPLEX [Concomitant]
     Active Substance: FERRIC POLYSACCHARIDE COMPLEX
  21. SILDENAFIL [Concomitant]
     Active Substance: SILDENAFIL
  22. FISH OIL [Concomitant]
     Active Substance: FISH OIL
  23. PREDNISONE [Concomitant]
     Active Substance: PREDNISONE
  24. ZITHROMAX [Concomitant]
     Active Substance: AZITHROMYCIN DIHYDRATE
  25. IRON\VITAMINS [Concomitant]
     Active Substance: IRON\VITAMINS

REACTIONS (1)
  - Pericardial effusion [Unknown]

NARRATIVE: CASE EVENT DATE: 20250829
